FAERS Safety Report 18528601 (Version 1)
Quarter: 2020Q4

REPORT INFORMATION
  Report Type: Spontaneous
  Country: RO (occurrence: RO)
  Receive Date: 20201120
  Receipt Date: 20201120
  Transmission Date: 20210114
  Serious: Yes (Life-Threatening)
  Sender: FDA-Public Use
  Company Number: RO-ASTRAZENECA-2020SF52677

PATIENT
  Age: 62 Year
  Sex: Male

DRUGS (6)
  1. SIOFOR [Concomitant]
     Active Substance: METFORMIN HYDROCHLORIDE
  2. ASA [Concomitant]
     Active Substance: ASPIRIN
     Indication: ACUTE MYOCARDIAL INFARCTION
  3. ATORVASTATIN [Concomitant]
     Active Substance: ATORVASTATIN
  4. BRILIQUE [Suspect]
     Active Substance: TICAGRELOR
     Indication: ACUTE MYOCARDIAL INFARCTION
     Route: 048
  5. ASA [Concomitant]
     Active Substance: ASPIRIN
     Indication: STENT PLACEMENT
  6. BRILIQUE [Suspect]
     Active Substance: TICAGRELOR
     Indication: STENT PLACEMENT
     Route: 048

REACTIONS (1)
  - Cerebrovascular accident [Unknown]
